FAERS Safety Report 17675203 (Version 1)
Quarter: 2020Q2

REPORT INFORMATION
  Report Type: Spontaneous
  Country: US (occurrence: US)
  Receive Date: 20200415
  Receipt Date: 20200415
  Transmission Date: 20200714
  Serious: No
  Sender: FDA-Public Use
  Company Number: None

PATIENT
  Age: 72 Year
  Sex: Male

DRUGS (12)
  1. CLONIDINE. [Concomitant]
     Active Substance: CLONIDINE
  2. ALLOPURINOL. [Concomitant]
     Active Substance: ALLOPURINOL
  3. PRALUENT [Suspect]
     Active Substance: ALIROCUMAB
     Indication: PRODUCT USED FOR UNKNOWN INDICATION
     Dosage: ?          OTHER FREQUENCY:Q2WKS;?
     Route: 058
     Dates: start: 20200212
  4. CARVEDILOL. [Concomitant]
     Active Substance: CARVEDILOL
  5. FLUTICASONE. [Concomitant]
     Active Substance: FLUTICASONE
  6. MINOXIDIL. [Concomitant]
     Active Substance: MINOXIDIL
  7. BUMETANIDE. [Concomitant]
     Active Substance: BUMETANIDE
  8. EZETIMIBE. [Concomitant]
     Active Substance: EZETIMIBE
  9. FINASTERIDE. [Concomitant]
     Active Substance: FINASTERIDE
  10. NIFEDIPINE. [Concomitant]
     Active Substance: NIFEDIPINE
  11. GABAPENTIN. [Concomitant]
     Active Substance: GABAPENTIN
  12. PANTOPRAZOLE [Concomitant]
     Active Substance: PANTOPRAZOLE

REACTIONS (3)
  - Burning sensation [None]
  - Pain in extremity [None]
  - Sleep disorder [None]

NARRATIVE: CASE EVENT DATE: 20200301
